FAERS Safety Report 8435983-6 (Version None)
Quarter: 2012Q2

REPORT INFORMATION
  Report Type: 
  Country: None (occurrence: None)
  Receive Date: 20120608
  Receipt Date: 20120608
  Transmission Date: 20120825
  Serious: Yes (Other)
  Sender: FDA-Public Use
  Company Number: None

PATIENT
  Age: 45 Year
  Sex: Male
  Weight: 68.0396 kg

DRUGS (1)
  1. PROPECIA [Suspect]

REACTIONS (3)
  - PREMATURE EJACULATION [None]
  - AMNESIA [None]
  - SEXUAL DYSFUNCTION [None]
